FAERS Safety Report 5442068-X (Version None)
Quarter: 2007Q3

REPORT INFORMATION
  Report Type: 
  Country: None (occurrence: None)
  Receive Date: 20070904
  Receipt Date: 20070824
  Transmission Date: 20080115
  Serious: Yes (Hospitalization)
  Sender: FDA-Public Use
  Company Number: JP-SANOFI-SYNTHELABO-F01200701012

PATIENT
  Sex: Male

DRUGS (8)
  1. PIRENOXINE [Concomitant]
     Indication: CATARACT
     Dosage: UNK
     Route: 031
     Dates: start: 20070710
  2. LATANOPROST [Concomitant]
     Indication: GLAUCOMA
     Dosage: UNK
     Route: 031
     Dates: start: 20070710
  3. MAGNESIUM OXIDE [Concomitant]
     Indication: CONSTIPATION
     Route: 048
     Dates: start: 20070801
  4. DOMPERIDONE [Concomitant]
     Route: 048
     Dates: start: 20070705, end: 20070808
  5. SANACTASE COMBINED DRUG [Concomitant]
     Route: 048
     Dates: start: 20070705, end: 20070808
  6. LANSOPRAZOLE [Concomitant]
     Route: 048
     Dates: start: 20070705, end: 20070808
  7. TS-1 [Suspect]
     Dosage: 14 CONSECUTIVE DAYS EVERY 3 WEEKS
     Route: 048
     Dates: start: 20070801, end: 20070808
  8. OXALIPLATIN [Suspect]
     Indication: GASTRIC CANCER
     Dosage: 163 MG
     Route: 042
     Dates: start: 20070801, end: 20070801

REACTIONS (1)
  - CHOLANGITIS [None]
